FAERS Safety Report 21206876 (Version 1)
Quarter: 2022Q3

REPORT INFORMATION
  Report Type: Spontaneous
  Country: FR (occurrence: FR)
  Receive Date: 20220812
  Receipt Date: 20220812
  Transmission Date: 20221027
  Serious: Yes (Hospitalization)
  Sender: FDA-Public Use
  Company Number: None

PATIENT
  Sex: Male

DRUGS (3)
  1. LYRICA [Suspect]
     Active Substance: PREGABALIN
     Dosage: 2400 MG (8 DF) 8 CAPSULES
     Route: 048
     Dates: start: 2008
  2. RIVOTRIL [Suspect]
     Active Substance: CLONAZEPAM
     Dosage: 8 MG (4 DF, 4 TABLETS)
     Route: 048
     Dates: start: 2008
  3. TRAMADOL HYDROCHLORIDE [Suspect]
     Active Substance: TRAMADOL HYDROCHLORIDE
     Dosage: 10 DF (10 TABLETS)
     Route: 048
     Dates: start: 2008

REACTIONS (6)
  - Bradypnoea [Recovered/Resolved]
  - Oxygen saturation decreased [Recovered/Resolved]
  - Altered state of consciousness [Recovered/Resolved]
  - Intentional product misuse [Recovered/Resolved]
  - Overdose [Unknown]
  - Off label use [Unknown]

NARRATIVE: CASE EVENT DATE: 20080101
